FAERS Safety Report 4522077-5 (Version None)
Quarter: 2004Q4

REPORT INFORMATION
  Report Type: 
  Country: None (occurrence: None)
  Receive Date: 20041209
  Receipt Date: 20041025
  Transmission Date: 20050328
  Serious: Yes (Hospitalization, Other)
  Sender: FDA-Public Use
  Company Number: AU-AMGEN-US097015

PATIENT
  Sex: Male

DRUGS (2)
  1. ARANESP [Suspect]
     Indication: MYELODYSPLASTIC SYNDROME
     Route: 058
     Dates: start: 20040625, end: 20040817
  2. BLOOD CELLS, PACKED HUMAN [Concomitant]

REACTIONS (10)
  - ABDOMINAL PAIN [None]
  - ANAEMIA [None]
  - BLAST CELL COUNT INCREASED [None]
  - CARDIAC FAILURE [None]
  - ERYTHROMELALGIA [None]
  - HEPATOMEGALY [None]
  - LEUKOCYTOSIS [None]
  - LOWER GASTROINTESTINAL HAEMORRHAGE [None]
  - THROMBOCYTHAEMIA [None]
  - THROMBOCYTOPENIA [None]
